FAERS Safety Report 8292427-5 (Version None)
Quarter: 2012Q2

REPORT INFORMATION
  Report Type: 
  Country: None (occurrence: None)
  Receive Date: 20120417
  Receipt Date: 20120403
  Transmission Date: 20120825
  Serious: Yes (Hospitalization, Disabling, Other)
  Sender: FDA-Public Use
  Company Number: BE-CELGENEUS-013-C5013-10060186

PATIENT
  Sex: Female
  Weight: 61.2 kg

DRUGS (9)
  1. TRAMADOL HCL [Concomitant]
     Route: 065
  2. BUPRENORPHINE [Concomitant]
     Dosage: 105 MILLIGRAM
     Route: 065
  3. PANTOPRAZOLE [Concomitant]
     Indication: OESOPHAGITIS
     Dosage: 20 MILLIGRAM
     Route: 048
     Dates: start: 20070101
  4. LORAZEPAM [Concomitant]
     Dosage: 2.5 MILLIGRAM
     Route: 048
  5. LYRICA [Concomitant]
     Dosage: 150 MILLIGRAM
     Route: 048
     Dates: start: 20080101
  6. SINGULAIR [Concomitant]
     Indication: ASTHMA
     Dosage: 10 MILLIGRAM
     Route: 048
     Dates: start: 20060101
  7. REVLIMID [Suspect]
     Indication: MULTIPLE MYELOMA
     Dosage: 10 MILLIGRAM
     Route: 048
     Dates: start: 20100524, end: 20100627
  8. PAROXETINE [Concomitant]
     Indication: DEPRESSION
     Dosage: 20 MILLIGRAM
     Route: 048
     Dates: start: 20080101
  9. ASPIRIN [Concomitant]
     Indication: THROMBOSIS PROPHYLAXIS
     Route: 048

REACTIONS (5)
  - INTERSTITIAL LUNG DISEASE [None]
  - CONSTIPATION [None]
  - ANXIETY [None]
  - PAIN [None]
  - COGNITIVE DISORDER [None]
